FAERS Safety Report 6600298-5 (Version None)
Quarter: 2010Q1

REPORT INFORMATION
  Report Type: 
  Country: None (occurrence: None)
  Receive Date: 20100224
  Receipt Date: 20100217
  Transmission Date: 20100710
  Serious: Yes (Other)
  Sender: FDA-Public Use
  Company Number: US-ASTRAZENECA-2010SE06938

PATIENT
  Sex: Female
  Weight: 58.1 kg

DRUGS (2)
  1. SYMBICORT [Suspect]
     Indication: ASTHMA
     Dosage: TOTAL DAILY DOSE 640 MCG
     Route: 055
     Dates: start: 20091101
  2. VENTOLIN [Concomitant]

REACTIONS (4)
  - CONTUSION [None]
  - CONVULSION [None]
  - LACERATION [None]
  - LOSS OF CONSCIOUSNESS [None]
